FAERS Safety Report 9713891 (Version 5)
Quarter: 2014Q2

REPORT INFORMATION
  Report Type: Report from Study
  Country: RU (occurrence: RU)
  Receive Date: 20131126
  Receipt Date: 20140606
  Transmission Date: 20141212
  Serious: Yes (Death, Life-Threatening, Hospitalization, Other)
  Sender: FDA-Public Use
  Company Number: RU-GLAXOSMITHKLINE-B0947552A

PATIENT
  Age: 51 Year
  Sex: Male

DRUGS (8)
  1. OMACOR [Suspect]
     Indication: MYOCARDIAL INFARCTION
     Dosage: 1000MG PER DAY
     Route: 048
     Dates: start: 20121206, end: 20131229
  2. BISOPROLOL [Concomitant]
     Indication: ARRHYTHMIA
     Dosage: 5MG PER DAY
     Route: 048
     Dates: start: 20120906, end: 20131229
  3. CLOPIDOGREL [Concomitant]
     Dosage: 75MG PER DAY
     Route: 048
     Dates: start: 20120906, end: 20131229
  4. ROSUVASTATIN [Concomitant]
     Dosage: 20MG PER DAY
     Route: 048
     Dates: start: 20120906, end: 20131229
  5. PERINDOPRIL [Concomitant]
     Dosage: 5MG PER DAY
     Dates: start: 20120909, end: 20131229
  6. ACETYLSALICYLIC ACID [Concomitant]
     Dosage: 100MG PER DAY
     Route: 048
     Dates: start: 20120906, end: 20131229
  7. CISPLATIN [Concomitant]
     Dosage: 40MGM2 CYCLIC
     Route: 042
     Dates: start: 20131005, end: 20131211
  8. ETOPOSIDE [Concomitant]
     Dosage: 100MGM2 CYCLIC
     Route: 042
     Dates: start: 20131005, end: 20131211

REACTIONS (3)
  - Lung neoplasm malignant [Fatal]
  - Atrial fibrillation [Recovered/Resolved]
  - Bronchial haemorrhage [Fatal]
